FAERS Safety Report 12434601 (Version 1)
Quarter: 2016Q2

REPORT INFORMATION
  Report Type: Spontaneous
  Country: US (occurrence: US)
  Receive Date: 20160603
  Receipt Date: 20160603
  Transmission Date: 20160815
  Serious: No
  Sender: FDA-Public Use
  Company Number: US-DSJP-DSU-2015-125763

PATIENT
  Sex: Female
  Weight: 83.9 kg

DRUGS (1)
  1. BENICAR [Suspect]
     Active Substance: OLMESARTAN MEDOXOMIL
     Indication: HYPERTENSION
     Dosage: 20 MG, UNK
     Dates: start: 201003, end: 201009

REACTIONS (3)
  - Dizziness [Recovering/Resolving]
  - Constipation [Unknown]
  - Malabsorption [Recovering/Resolving]

NARRATIVE: CASE EVENT DATE: 2010
